FAERS Safety Report 25418639 (Version 1)
Quarter: 2025Q2

REPORT INFORMATION
  Report Type: Report from Study
  Country: CA (occurrence: CA)
  Receive Date: 20250610
  Receipt Date: 20250610
  Transmission Date: 20250717
  Serious: Yes (Death, Other)
  Sender: VERITY PHARMACEUTICALS INC.
  Company Number: CA-VER-202500102

PATIENT
  Age: 79 Year
  Sex: Male

DRUGS (13)
  1. TRELSTAR [Suspect]
     Active Substance: TRIPTORELIN PAMOATE
     Indication: Prostate cancer
     Dosage: POWDER FOR PROLONGED-RELEASE SUSPENSION FOR INJECT; 11.25 MILLIGRAM, ONCE / 3 MONTHS
     Route: 030
     Dates: start: 20220616, end: 20220616
  2. TRELSTAR [Suspect]
     Active Substance: TRIPTORELIN PAMOATE
     Indication: Prostate cancer
     Dosage: POWDER FOR PROLONGED-RELEASE SUSPENSION FOR INJECT; 11.25 MILLIGRAM, ONCE / 3 MONTHS
     Route: 030
     Dates: start: 20220916, end: 20220916
  3. TRELSTAR [Suspect]
     Active Substance: TRIPTORELIN PAMOATE
     Indication: Prostate cancer
     Dosage: POWDER FOR PROLONGED-RELEASE SUSPENSION FOR INJECT; 11.25 MILLIGRAM, ONCE / 3 MONTHS
     Route: 030
     Dates: start: 20221216, end: 20221216
  4. TRELSTAR [Suspect]
     Active Substance: TRIPTORELIN PAMOATE
     Indication: Prostate cancer
     Dosage: POWDER FOR PROLONGED-RELEASE SUSPENSION FOR INJECT; 11.25 MILLIGRAM, ONCE / 3 MONTHS
     Route: 030
     Dates: start: 20230323, end: 20230323
  5. TRELSTAR [Suspect]
     Active Substance: TRIPTORELIN PAMOATE
     Indication: Prostate cancer
     Dosage: POWDER FOR PROLONGED-RELEASE SUSPENSION FOR INJECT; 11.25 MILLIGRAM, ONCE / 3 MONTHS
     Route: 030
     Dates: start: 20230623, end: 20230623
  6. TRELSTAR [Suspect]
     Active Substance: TRIPTORELIN PAMOATE
     Indication: Prostate cancer
     Dosage: POWDER FOR PROLONGED-RELEASE SUSPENSION FOR INJECT; 11.25 MILLIGRAM, ONCE / 3 MONTHS
     Route: 030
     Dates: start: 20230922, end: 20230922
  7. TRELSTAR [Suspect]
     Active Substance: TRIPTORELIN PAMOATE
     Indication: Prostate cancer
     Dosage: POWDER FOR PROLONGED-RELEASE SUSPENSION FOR INJECT; 11.25 MILLIGRAM, ONCE / 3 MONTHS
     Route: 030
     Dates: start: 20231215, end: 20231215
  8. TRELSTAR [Suspect]
     Active Substance: TRIPTORELIN PAMOATE
     Indication: Prostate cancer
     Dosage: POWDER FOR PROLONGED-RELEASE SUSPENSION FOR INJECT; 11.25 MILLIGRAM, ONCE / 3 MONTHS
     Route: 030
     Dates: start: 20240311, end: 20240311
  9. TRELSTAR [Suspect]
     Active Substance: TRIPTORELIN PAMOATE
     Indication: Prostate cancer
     Dosage: POWDER FOR PROLONGED-RELEASE SUSPENSION FOR INJECT; 11.25 MILLIGRAM, ONCE / 3 MONTHS
     Route: 030
     Dates: start: 20240610, end: 20240610
  10. TRELSTAR [Suspect]
     Active Substance: TRIPTORELIN PAMOATE
     Indication: Prostate cancer
     Dosage: POWDER FOR PROLONGED-RELEASE SUSPENSION FOR INJECT; 11.25 MILLIGRAM, ONCE / 3 MONTHS
     Route: 030
     Dates: start: 20240913, end: 20240913
  11. TRELSTAR [Suspect]
     Active Substance: TRIPTORELIN PAMOATE
     Indication: Prostate cancer
     Dosage: POWDER FOR PROLONGED-RELEASE SUSPENSION FOR INJECT; BATCH : 16817; 11.25 MILLIGRAM, ONCE / 3 MONTHS
     Route: 030
     Dates: start: 20241206, end: 20241206
  12. TRELSTAR [Suspect]
     Active Substance: TRIPTORELIN PAMOATE
     Indication: Prostate cancer
     Dosage: POWDER FOR PROLONGED-RELEASE SUSPENSION FOR INJECT; BATCH: 16815; 11.25 MILLIGRAM, ONCE / 3 MONTHS
     Route: 030
     Dates: start: 20250303, end: 20250303
  13. UNSPECIFIED INGREDIENT [Concomitant]
     Active Substance: UNSPECIFIED INGREDIENT
     Indication: Chemotherapy
     Route: 065

REACTIONS (3)
  - Inappropriate schedule of product administration [Recovered/Resolved]
  - Heart rate irregular [Unknown]
  - Death [Fatal]

NARRATIVE: CASE EVENT DATE: 20241206
